FAERS Safety Report 10084260 (Version 1)
Quarter: 2014Q2

REPORT INFORMATION
  Report Type: Spontaneous
  Country: NL (occurrence: NL)
  Receive Date: 20140417
  Receipt Date: 20140417
  Transmission Date: 20141212
  Serious: Yes (Congenital Anomaly)
  Sender: FDA-Public Use
  Company Number: NL-GALDERMA-NL14001284

PATIENT
  Sex: Female
  Weight: 2.92 kg

DRUGS (3)
  1. DIFFERIN [Suspect]
     Indication: ACNE
     Dosage: 0.1%
     Route: 064
  2. FOLIUMZUUR [Concomitant]
     Dosage: 0.5 MG
     Route: 064
     Dates: start: 201301, end: 201302
  3. FERO GRADUMET [Concomitant]
     Route: 064
     Dates: start: 20130410, end: 20130607

REACTIONS (1)
  - Talipes [Unknown]
